FAERS Safety Report 17131266 (Version 3)
Quarter: 2020Q2

REPORT INFORMATION
  Report Type: Report from Study
  Country: US (occurrence: US)
  Receive Date: 20191209
  Receipt Date: 20200506
  Transmission Date: 20200713
  Serious: Yes (Other)
  Sender: FDA-Public Use
  Company Number: NVSC2019US063044

PATIENT
  Sex: Female

DRUGS (1)
  1. GILENYA [Suspect]
     Active Substance: FINGOLIMOD HYDROCHLORIDE
     Indication: MULTIPLE SCLEROSIS
     Dosage: 1 DF, QD
     Route: 048
     Dates: start: 20190429

REACTIONS (4)
  - Depressed mood [Unknown]
  - Heart rate decreased [Unknown]
  - Atrial fibrillation [Unknown]
  - Hepatic enzyme increased [Unknown]
